FAERS Safety Report 7716213-7 (Version None)
Quarter: 2011Q3

REPORT INFORMATION
  Report Type: 
  Country: None (occurrence: None)
  Receive Date: 20110829
  Receipt Date: 20110818
  Transmission Date: 20111222
  Serious: Yes (Other)
  Sender: FDA-Public Use
  Company Number: US-GENZYME-CAMP-1001845

PATIENT
  Sex: Female
  Weight: 110 kg

DRUGS (3)
  1. ALEMTUZUMAB [Suspect]
     Dosage: 6 MG, QD
     Route: 042
     Dates: start: 20091012, end: 20091012
  2. ALEMTUZUMAB [Suspect]
     Indication: MULTIPLE SCLEROSIS
     Dosage: 12 MG, QD
     Route: 042
     Dates: start: 20090914, end: 20090917
  3. ALEMTUZUMAB [Suspect]
     Dosage: 12 MG, QDX3
     Route: 042
     Dates: start: 20101110, end: 20101112

REACTIONS (1)
  - BASAL CELL CARCINOMA [None]
